FAERS Safety Report 10088807 (Version 1)
Quarter: 2014Q2

REPORT INFORMATION
  Report Type: Other
  Country: DE (occurrence: DE)
  Receive Date: 20140421
  Receipt Date: 20140421
  Transmission Date: 20141212
  Serious: Yes (Other)
  Sender: FDA-Public Use
  Company Number: DE-LUPIN PHARMACEUTICALS INC.-2014-00925

PATIENT
  Age: 26 Year
  Sex: Female
  Weight: 75 kg

DRUGS (3)
  1. LAMOTRIGIN [Suspect]
     Indication: EPILEPSY
     Route: 048
  2. ORFIRIL [Suspect]
     Indication: EPILEPSY
     Dosage: 800 [MG/D]/ DOSAGE: 300-0-500 MG/D
     Route: 048
  3. FOLSAURE [Concomitant]
     Indication: PROPHYLAXIS OF NEURAL TUBE DEFECT
     Route: 048

REACTIONS (4)
  - Gestational diabetes [Unknown]
  - Polyhydramnios [Unknown]
  - Foetal macrosomia [Unknown]
  - Exposure during pregnancy [Unknown]
